FAERS Safety Report 20596438 (Version 1)
Quarter: 2022Q1

REPORT INFORMATION
  Report Type: Spontaneous
  Country: US (occurrence: US)
  Receive Date: 20220315
  Receipt Date: 20220315
  Transmission Date: 20220423
  Serious: No
  Sender: FDA-Public Use
  Company Number: US-PFIZER INC-202200372636

PATIENT
  Age: 72 Year
  Sex: Female

DRUGS (1)
  1. VERAPAMIL HCL [Suspect]
     Active Substance: VERAPAMIL HYDROCHLORIDE
     Indication: Hypertension
     Dosage: 720 MG (3 TABLETS A DAY TOTAL, BY TAKING 1.5 TABLETS IN THE MORNING AND 1.5 TABLETS AT NIGHT)

REACTIONS (2)
  - Intentional overdose [Unknown]
  - Blood pressure inadequately controlled [Unknown]
